FAERS Safety Report 11063018 (Version 5)
Quarter: 2016Q1

REPORT INFORMATION
  Report Type: Spontaneous
  Country: DE (occurrence: DE)
  Receive Date: 20150424
  Receipt Date: 20160125
  Transmission Date: 20160525
  Serious: Yes (Death, Hospitalization, Other)
  Sender: FDA-Public Use
  Company Number: DE-PFIZER INC-2015140610

PATIENT
  Age: 76 Year
  Sex: Male
  Weight: 97 kg

DRUGS (4)
  1. TOZAM [Suspect]
     Active Substance: AMLODIPINE\LOSARTAN POTASSIUM
     Dosage: 2X/DAY
     Route: 065
  2. PANTOPRAZOLE [Suspect]
     Active Substance: PANTOPRAZOLE SODIUM
     Dosage: UNK
     Route: 065
     Dates: start: 20150302
  3. GLYCOPYRRONIUM BROMIDE [Suspect]
     Active Substance: GLYCOPYRRONIUM
     Indication: CHRONIC OBSTRUCTIVE PULMONARY DISEASE
     Dosage: 50 ?G, DAILY
     Dates: start: 20150317
  4. LISINOPRIL. [Suspect]
     Active Substance: LISINOPRIL
     Dosage: DAILY
     Route: 065

REACTIONS (2)
  - Pancreatitis [Fatal]
  - Shock [Fatal]

NARRATIVE: CASE EVENT DATE: 20150414
